FAERS Safety Report 4809026-7 (Version None)
Quarter: 2005Q4

REPORT INFORMATION
  Report Type: 
  Country: None (occurrence: None)
  Receive Date: 20051021
  Receipt Date: 20040430
  Transmission Date: 20060501
  Serious: Yes (Other)
  Sender: FDA-Public Use
  Company Number: GBS040514854

PATIENT
  Age: 48 Year
  Sex: Male

DRUGS (1)
  1. OLANZAPINE [Suspect]
     Dosage: 10 MG/2 DAY
     Route: 048
     Dates: start: 20020101

REACTIONS (2)
  - DIABETES MELLITUS [None]
  - PLATELET COUNT DECREASED [None]
